FAERS Safety Report 9171360 (Version 1)
Quarter: 2013Q1

REPORT INFORMATION
  Report Type: Spontaneous
  Country: JP (occurrence: JP)
  Receive Date: 20130319
  Receipt Date: 20130319
  Transmission Date: 20140127
  Serious: Yes (Hospitalization)
  Sender: FDA-Public Use
  Company Number: JP-ROCHE-1175079

PATIENT
  Age: 50 Year
  Sex: Female
  Weight: 48 kg

DRUGS (8)
  1. AVASTIN [Suspect]
     Indication: LUNG ADENOCARCINOMA METASTATIC
     Route: 041
     Dates: start: 20121210
  2. PARAPLATIN [Suspect]
     Indication: LUNG ADENOCARCINOMA METASTATIC
     Route: 041
     Dates: start: 20121210, end: 20121231
  3. PARAPLATIN [Suspect]
     Indication: LUNG ADENOCARCINOMA METASTATIC
     Dosage: DOSAGE IS UNCERTAIN.
     Route: 041
     Dates: start: 20130123
  4. ALIMTA [Suspect]
     Indication: LUNG ADENOCARCINOMA METASTATIC
     Route: 041
     Dates: start: 20121210, end: 20121231
  5. NEUTROGIN [Suspect]
     Indication: PRODUCT USED FOR UNKNOWN INDICATION
     Route: 041
     Dates: start: 20121222, end: 20121225
  6. IRESSA [Concomitant]
     Indication: LUNG ADENOCARCINOMA METASTATIC
     Route: 048
     Dates: start: 20120131, end: 20121216
  7. FOLIAMIN [Concomitant]
     Indication: ADVERSE REACTION
     Route: 048
     Dates: start: 20121203
  8. PACLITAXEL [Concomitant]
     Indication: LUNG ADENOCARCINOMA METASTATIC
     Dosage: DOSAGE IS UNCERTAIN.
     Route: 041
     Dates: start: 20130123

REACTIONS (5)
  - Erythema [Recovering/Resolving]
  - Liver disorder [Not Recovered/Not Resolved]
  - Malaise [Recovered/Resolved]
  - Nausea [Recovered/Resolved]
  - Rash [Recovered/Resolved]
